FAERS Safety Report 15625397 (Version 17)
Quarter: 2025Q1

REPORT INFORMATION
  Report Type: Report from Study
  Country: DE (occurrence: DE)
  Receive Date: 20181116
  Receipt Date: 20250207
  Transmission Date: 20250409
  Serious: No
  Sender: ROCHE
  Company Number: DE-ROCHE-2102589

PATIENT
  Age: 40 Year
  Sex: Female

DRUGS (16)
  1. OCREVUS [Suspect]
     Active Substance: OCRELIZUMAB
     Indication: Relapsing-remitting multiple sclerosis
     Route: 040
     Dates: start: 20180313, end: 20180313
  2. OCREVUS [Suspect]
     Active Substance: OCRELIZUMAB
     Route: 040
     Dates: start: 20180327
  3. OCREVUS [Suspect]
     Active Substance: OCRELIZUMAB
     Route: 040
     Dates: start: 20180927
  4. OCREVUS [Suspect]
     Active Substance: OCRELIZUMAB
     Route: 040
     Dates: start: 20190325
  5. OCREVUS [Suspect]
     Active Substance: OCRELIZUMAB
     Route: 040
     Dates: start: 20190923
  6. OCREVUS [Suspect]
     Active Substance: OCRELIZUMAB
     Route: 040
     Dates: start: 20200323
  7. OCREVUS [Suspect]
     Active Substance: OCRELIZUMAB
     Route: 040
     Dates: start: 20210322
  8. OCREVUS [Suspect]
     Active Substance: OCRELIZUMAB
     Route: 040
     Dates: start: 20180313, end: 20230320
  9. CHOLECALCIFEROL [Concomitant]
     Active Substance: CHOLECALCIFEROL
  10. BISOPROLOL [Concomitant]
     Active Substance: BISOPROLOL
  11. IBUPROFEN [Concomitant]
     Active Substance: IBUPROFEN
  12. ALITRETINOIN [Concomitant]
     Active Substance: ALITRETINOIN
  13. ACETAMINOPHEN [Concomitant]
     Active Substance: ACETAMINOPHEN
  14. FOSTER [Concomitant]
     Active Substance: BECLOMETHASONE\FORMOTEROL
  15. CODEINE [Concomitant]
     Active Substance: CODEINE
  16. ALBUTEROL [Concomitant]
     Active Substance: ALBUTEROL

REACTIONS (24)
  - Headache [Recovered/Resolved]
  - Blood pressure decreased [Recovered/Resolved]
  - Cardiovascular disorder [Not Recovered/Not Resolved]
  - Micturition urgency [Unknown]
  - Dizziness [Recovering/Resolving]
  - Gastrooesophageal reflux disease [Recovered/Resolved]
  - Neuritis [Recovered/Resolved]
  - Feeling hot [Recovered/Resolved]
  - Dysarthria [Not Recovered/Not Resolved]
  - Gait disturbance [Recovered/Resolved]
  - Nasopharyngitis [Recovered/Resolved]
  - Nausea [Recovered/Resolved]
  - Hyperhidrosis [Recovered/Resolved]
  - Listless [Recovered/Resolved]
  - Influenza like illness [Recovered/Resolved]
  - Road traffic accident [Unknown]
  - Post-traumatic neck syndrome [Recovered/Resolved]
  - Tooth extraction [Recovered/Resolved]
  - Fatigue [Not Recovered/Not Resolved]
  - Fatigue [Not Recovered/Not Resolved]
  - COVID-19 [Recovered/Resolved]
  - Cough [Recovered/Resolved]
  - Asthma [Recovered/Resolved]
  - Full blood count abnormal [Recovered/Resolved]

NARRATIVE: CASE EVENT DATE: 20180313
